FAERS Safety Report 25713779 (Version 1)
Quarter: 2025Q3

REPORT INFORMATION
  Report Type: Spontaneous
  Country: EU (occurrence: EU)
  Receive Date: 20250822
  Receipt Date: 20250822
  Transmission Date: 20251021
  Serious: Yes (Other)
  Sender: CELLTRION
  Company Number: EU-PHARMAGEN-PHARMAGEN20250325b_Lit

PATIENT

DRUGS (5)
  1. DENOSUMAB [Suspect]
     Active Substance: DENOSUMAB
     Indication: Metastases to bone
     Route: 058
  2. LETROZOLE [Suspect]
     Active Substance: LETROZOLE
     Indication: Inflammatory carcinoma of the breast
  3. RIBOCICLIB [Suspect]
     Active Substance: RIBOCICLIB
     Indication: Inflammatory carcinoma of the breast
     Route: 058
  4. GOSERELIN [Concomitant]
     Active Substance: GOSERELIN
     Indication: Hormone receptor positive breast cancer
     Route: 058
  5. TIRZEPATIDE [Concomitant]
     Active Substance: TIRZEPATIDE
     Dosage: 2.5 MG, EVERY 1 WEEK

REACTIONS (6)
  - Neutropenia [Recovered/Resolved]
  - Palpitations [Recovered/Resolved]
  - Electrocardiogram QT prolonged [Recovered/Resolved]
  - Periodontitis [Recovering/Resolving]
  - Obesity [Unknown]
  - Hypercholesterolaemia [Unknown]
